FAERS Safety Report 5768731-9 (Version None)
Quarter: 2008Q2

REPORT INFORMATION
  Report Type: 
  Country: None (occurrence: None)
  Receive Date: 20080612
  Receipt Date: 20080611
  Transmission Date: 20081010
  Serious: Yes (Death)
  Sender: FDA-Public Use
  Company Number: BR-BOEHRINGER INGELHEIM GMBH, GERMANY-2008-BP-08662BR

PATIENT

DRUGS (1)
  1. SPIRIVA [Suspect]
     Route: 055
     Dates: start: 20070101, end: 20070101

REACTIONS (1)
  - RESPIRATORY FAILURE [None]
